FAERS Safety Report 21229109 (Version 1)
Quarter: 2022Q3

REPORT INFORMATION
  Report Type: Spontaneous
  Country: US (occurrence: None)
  Receive Date: 20220818
  Receipt Date: 20220818
  Transmission Date: 20221027
  Serious: Yes (Other)
  Sender: FDA-Public Use
  Company Number: None

PATIENT
  Sex: Female
  Weight: 63.9 kg

DRUGS (5)
  1. OTEZLA [Suspect]
     Active Substance: APREMILAST
     Indication: Psoriasis
     Dosage: FREQUENCY : TWICE A DAY;?
     Route: 048
     Dates: start: 20220414
  2. clobetasol shampoo 0.05% [Concomitant]
  3. calcipotriene 0.005% cream [Concomitant]
  4. hair, skin and nails multivitamin [Concomitant]
  5. Prevident 5000 Plus Dental Cream [Concomitant]

REACTIONS (2)
  - Headache [None]
  - Malaise [None]
